FAERS Safety Report 6977067-X (Version None)
Quarter: 2010Q3

REPORT INFORMATION
  Report Type: 
  Country: None (occurrence: None)
  Receive Date: 20100910
  Receipt Date: 20100901
  Transmission Date: 20110219
  Serious: Yes (Life-Threatening, Hospitalization)
  Sender: FDA-Public Use
  Company Number: AT-SANOFI-AVENTIS-2010SA052590

PATIENT
  Age: 57 Year
  Sex: Female
  Weight: 60 kg

DRUGS (7)
  1. ARAVA [Suspect]
     Indication: RHEUMATOID ARTHRITIS
     Route: 048
     Dates: start: 19990101
  2. HUMIRA [Suspect]
     Indication: RHEUMATOID ARTHRITIS
     Route: 058
  3. PANTOPRAZOLE [Suspect]
     Route: 048
  4. REMICADE [Concomitant]
     Route: 042
  5. SALAZOPYRIN [Concomitant]
     Indication: IMMUNOSUPPRESSANT DRUG THERAPY
     Route: 048
  6. VOLTAREN [Concomitant]
     Route: 048
  7. SIMVASTATIN [Concomitant]
     Dates: start: 20081101

REACTIONS (1)
  - COLON CANCER [None]
